FAERS Safety Report 7337638-8 (Version None)
Quarter: 2011Q1

REPORT INFORMATION
  Report Type: 
  Country: None (occurrence: None)
  Receive Date: 20110228
  Receipt Date: 20110216
  Transmission Date: 20110831
  Serious: Yes (Other)
  Sender: FDA-Public Use
  Company Number: 027227

PATIENT
  Age: 71 Year
  Sex: Male

DRUGS (4)
  1. VALPROATE SODIUM [Suspect]
     Indication: EPILEPSY
     Dosage: 1200 MG) ; (2400 MG)
  2. LEVETIRACETAM [Suspect]
     Indication: EPILEPSY
     Dosage: (3000 MG) ; (4000 MG)
  3. LAMOTRIGINE [Concomitant]
  4. LORAZEPAM [Concomitant]

REACTIONS (8)
  - DISORIENTATION [None]
  - RESTLESSNESS [None]
  - VENTRICULAR FIBRILLATION [None]
  - AMMONIA INCREASED [None]
  - GRAND MAL CONVULSION [None]
  - HYPOXIC-ISCHAEMIC ENCEPHALOPATHY [None]
  - EPILEPSY [None]
  - MYOCLONUS [None]
